FAERS Safety Report 8003017-3 (Version None)
Quarter: 2011Q4

REPORT INFORMATION
  Report Type: 
  Country: None (occurrence: None)
  Receive Date: 20111222
  Receipt Date: 20110824
  Transmission Date: 20120403
  Serious: No
  Sender: FDA-Public Use
  Company Number: US-GLAXOSMITHKLINE-A0943239A

PATIENT
  Sex: Male

DRUGS (1)
  1. AVODART [Suspect]
     Indication: PROSTATOMEGALY
     Dosage: .5MG UNKNOWN
     Route: 048

REACTIONS (2)
  - HAEMATOSPERMIA [None]
  - URETHRAL OBSTRUCTION [None]
